FAERS Safety Report 7997767-2 (Version None)
Quarter: 2011Q4

REPORT INFORMATION
  Report Type: 
  Country: None (occurrence: None)
  Receive Date: 20111221
  Receipt Date: 20111212
  Transmission Date: 20120403
  Serious: Yes (Hospitalization)
  Sender: FDA-Public Use
  Company Number: BR-BRISTOL-MYERS SQUIBB COMPANY-16298424

PATIENT
  Age: 51 Year
  Sex: Female

DRUGS (5)
  1. LASIX [Concomitant]
  2. AMITRIPTYLINE HCL [Concomitant]
  3. METHYLDOPA [Concomitant]
  4. METFORMIN HCL [Suspect]
     Indication: HEPATIC STEATOSIS
     Dates: start: 20111111
  5. CLONAZEPAM [Concomitant]

REACTIONS (5)
  - MALAISE [None]
  - BLOOD PRESSURE INCREASED [None]
  - DIZZINESS [None]
  - VOMITING [None]
  - OFF LABEL USE [None]
